FAERS Safety Report 12503893 (Version 1)
Quarter: 2016Q2

REPORT INFORMATION
  Report Type: Report from Study
  Country: CA (occurrence: CA)
  Receive Date: 20160628
  Receipt Date: 20160628
  Transmission Date: 20160815
  Serious: Yes (Hospitalization)
  Sender: FDA-Public Use
  Company Number: PHHY2015CA092658

PATIENT
  Sex: Female

DRUGS (2)
  1. EXJADE [Suspect]
     Active Substance: DEFERASIROX
     Dosage: 1 DF (500 MG), QD
     Route: 048
  2. EXJADE [Suspect]
     Active Substance: DEFERASIROX
     Indication: IRON OVERLOAD
     Dosage: 2 DF (1000 MG), QD
     Route: 048
     Dates: start: 20130701

REACTIONS (5)
  - Vision blurred [Unknown]
  - Hypotension [Recovered/Resolved]
  - Peripheral swelling [Unknown]
  - Rash generalised [Unknown]
  - Renal disorder [Recovered/Resolved]
